FAERS Safety Report 7095555-5 (Version None)
Quarter: 2010Q4

REPORT INFORMATION
  Report Type: 
  Country: None (occurrence: None)
  Receive Date: 20101111
  Receipt Date: 20101101
  Transmission Date: 20110411
  Serious: Yes (Hospitalization)
  Sender: FDA-Public Use
  Company Number: US-NAPPMUNDI-USA-2010-0052586

PATIENT
  Sex: Male

DRUGS (1)
  1. OXYCONTIN [Suspect]
     Indication: PRODUCT USED FOR UNKNOWN INDICATION
     Dosage: 160 MG, TID
     Route: 048

REACTIONS (3)
  - ABDOMINAL DISCOMFORT [None]
  - DRUG EFFECT DECREASED [None]
  - HOSPITALISATION [None]
